FAERS Safety Report 9891040 (Version 1)
Quarter: 2014Q1

REPORT INFORMATION
  Report Type: Spontaneous
  Country: US (occurrence: None)
  Receive Date: 20140211
  Receipt Date: 20140211
  Transmission Date: 20141002
  Serious: No
  Sender: FDA-Public Use
  Company Number: None

PATIENT
  Age: 71 Year
  Sex: Female
  Weight: 49.9 kg

DRUGS (6)
  1. ALENDRONATE SODIUIM [Suspect]
     Indication: OSTEOPOROSIS
     Route: 048
     Dates: start: 20130909, end: 20131028
  2. MULTI-VITAMIN [Concomitant]
  3. C [Concomitant]
  4. D3 [Concomitant]
  5. E BLACK COHASH [Concomitant]
  6. CALCIUM [Concomitant]

REACTIONS (6)
  - Urticaria [None]
  - Local swelling [None]
  - Erythema [None]
  - Pruritus [None]
  - Incontinence [None]
  - Blister [None]
